FAERS Safety Report 9215575 (Version 2)
Quarter: 2013Q2

REPORT INFORMATION
  Report Type: Spontaneous
  Country: CA (occurrence: CA)
  Receive Date: 20130408
  Receipt Date: 20130422
  Transmission Date: 20140414
  Serious: Yes (Hospitalization, Other)
  Sender: FDA-Public Use
  Company Number: CA-AMGEN-CANSP2013022188

PATIENT
  Age: 46 Year
  Sex: Male
  Weight: 97.96 kg

DRUGS (6)
  1. ENBREL [Suspect]
     Indication: PSORIASIS
     Dosage: 50 MG, 2 TIMES/WK
     Route: 058
     Dates: start: 20110726
  2. NEXIUM                             /01479302/ [Concomitant]
     Dosage: 40 MG, QD
  3. APO-HYDROCHLOROTHIAZIDE [Concomitant]
     Dosage: 25 MG, 1/2 TABLET DAILY
  4. APO-NORTRIPTYLINE [Concomitant]
     Dosage: TAKE 5 CAPSULES 125 MG AT BED TIME
  5. APO-QUETIAPINE [Concomitant]
     Dosage: 100 MG, QD, AT BED TIME
  6. RAMIPRIL [Concomitant]
     Dosage: 15 MG, QD

REACTIONS (2)
  - Tooth disorder [Recovered/Resolved]
  - Oedema mouth [Recovered/Resolved]
